FAERS Safety Report 22341329 (Version 3)
Quarter: 2024Q2

REPORT INFORMATION
  Report Type: Spontaneous
  Country: US (occurrence: US)
  Receive Date: 20230518
  Receipt Date: 20240507
  Transmission Date: 20240716
  Serious: No
  Sender: FDA-Public Use
  Company Number: US-LUNDBECK-DKLU3061122

PATIENT
  Age: 70 Year
  Sex: Female
  Weight: 55.33 kg

DRUGS (2)
  1. VYEPTI [Suspect]
     Active Substance: EPTINEZUMAB-JJMR
     Indication: Migraine prophylaxis
     Dosage: 100MG/ML
     Route: 041
     Dates: start: 20221019
  2. VYEPTI [Suspect]
     Active Substance: EPTINEZUMAB-JJMR
     Route: 041
     Dates: start: 20240102

REACTIONS (3)
  - Confusional state [Unknown]
  - Therapeutic response unexpected [Unknown]
  - Weight decreased [Unknown]
